FAERS Safety Report 8766607 (Version 2)
Quarter: 2012Q4

REPORT INFORMATION
  Report Type: 
  Country: FR (occurrence: FR)
  Receive Date: 20120903
  Receipt Date: 20121022
  Transmission Date: 20130627
  Serious: Yes (Death, Hospitalization)
  Sender: FDA-Public Use
  Company Number: FR-ELI_LILLY_AND_COMPANY-FR201208006746

PATIENT
  Age: 56 Year
  Sex: Male

DRUGS (3)
  1. ALIMTA [Suspect]
     Indication: LUNG CANCER METASTATIC
     Dosage: 900 mg, unknown
     Route: 042
     Dates: start: 20120706
  2. CISPLATIN [Concomitant]
     Indication: LUNG CANCER METASTATIC
     Dosage: 135 mg, unknown
     Route: 042
     Dates: start: 20120706
  3. NEBIVOLOL [Concomitant]
     Indication: HYPERTENSION
     Route: 048

REACTIONS (5)
  - Acute respiratory distress syndrome [Fatal]
  - Pulmonary embolism [Fatal]
  - Peripheral ischaemia [Recovering/Resolving]
  - Ischaemic stroke [Recovering/Resolving]
  - Anaemia [Unknown]
